FAERS Safety Report 7022081-1 (Version None)
Quarter: 2010Q3

REPORT INFORMATION
  Report Type: 
  Country: None (occurrence: None)
  Receive Date: 20100930
  Receipt Date: 20100923
  Transmission Date: 20110219
  Serious: Yes (Other)
  Sender: FDA-Public Use
  Company Number: TR-NOVOPROD-306708

PATIENT
  Sex: Female
  Weight: 67 kg

DRUGS (2)
  1. ACTRAPID HM PENFILL [Suspect]
     Indication: GESTATIONAL DIABETES
     Dosage: 18 IU, QD
     Route: 058
     Dates: start: 20100319, end: 20100529
  2. INSULATARD HM PENFILL [Suspect]
     Indication: GESTATIONAL DIABETES
     Dosage: 10 IU, QD
     Dates: start: 20100319, end: 20100529

REACTIONS (3)
  - DRUG EXPOSURE DURING PREGNANCY [None]
  - GESTATIONAL HYPERTENSION [None]
  - PREMATURE LABOUR [None]
